FAERS Safety Report 9793401 (Version 1)
Quarter: 2014Q1

REPORT INFORMATION
  Report Type: Spontaneous
  Country: BR (occurrence: BR)
  Receive Date: 20140102
  Receipt Date: 20140102
  Transmission Date: 20141002
  Serious: Yes (Other)
  Sender: FDA-Public Use
  Company Number: BR-BAYER-2013-158224

PATIENT
  Age: 60 Year
  Sex: Female

DRUGS (1)
  1. ASPIRINA [Suspect]
     Indication: CEREBROVASCULAR ACCIDENT PROPHYLAXIS
     Route: 048

REACTIONS (3)
  - Cerebral ischaemia [None]
  - Speech disorder [None]
  - Abdominal pain [None]
